FAERS Safety Report 10516121 (Version 2)
Quarter: 2014Q4

REPORT INFORMATION
  Report Type: Report from Study
  Country: US (occurrence: US)
  Receive Date: 20141014
  Receipt Date: 20141014
  Transmission Date: 20150528
  Serious: Yes (Other)
  Sender: FDA-Public Use
  Company Number: US-ALEXION PHARMACEUTICALS INC.-A200700316

PATIENT
  Sex: Female

DRUGS (3)
  1. EXJADE [Concomitant]
     Active Substance: DEFERASIROX
     Indication: PRODUCT USED FOR UNKNOWN INDICATION
     Dosage: UNK
     Dates: end: 200908
  2. DESFERAL [Concomitant]
     Active Substance: DEFEROXAMINE MESYLATE
     Indication: PRODUCT USED FOR UNKNOWN INDICATION
     Dosage: UNK
     Dates: start: 200908
  3. SOLIRIS [Suspect]
     Active Substance: ECULIZUMAB
     Indication: PAROXYSMAL NOCTURNAL HAEMOGLOBINURIA
     Dosage: UNK
     Route: 042

REACTIONS (21)
  - Transfusion [Unknown]
  - Malaise [Unknown]
  - Dyspnoea [Unknown]
  - Blood pressure systolic increased [Unknown]
  - Drug dose omission [Unknown]
  - Quality of life decreased [Unknown]
  - Activities of daily living impaired [Unknown]
  - Renal impairment [Unknown]
  - Fatigue [Unknown]
  - Blood lactate dehydrogenase increased [Recovering/Resolving]
  - Aspiration bone marrow [Unknown]
  - Palpitations [Unknown]
  - Viral upper respiratory tract infection [Unknown]
  - Haemoglobin decreased [Unknown]
  - Renal failure [Recovering/Resolving]
  - Abdominal pain [Unknown]
  - Diarrhoea [Unknown]
  - Confusional state [Unknown]
  - Disability [Unknown]
  - Serum ferritin increased [Unknown]
  - Memory impairment [Unknown]
